FAERS Safety Report 16904190 (Version 2)
Quarter: 2019Q4

REPORT INFORMATION
  Report Type: Spontaneous
  Country: GB (occurrence: GB)
  Receive Date: 20191010
  Receipt Date: 20191018
  Transmission Date: 20200122
  Serious: Yes (Other)
  Sender: FDA-Public Use
  Company Number: GB-MYLANLABS-2019M1094719

PATIENT
  Age: 62 Year
  Sex: Female

DRUGS (2)
  1. LYMECYCLINE [Suspect]
     Active Substance: LYMECYCLINE
     Indication: GRAFT VERSUS HOST DISEASE
     Dosage: UNK
     Route: 048
  2. MYCOPHENOLATE MOFETIL. [Suspect]
     Active Substance: MYCOPHENOLATE MOFETIL
     Indication: GRAFT VERSUS HOST DISEASE
     Dosage: UNK
     Route: 065

REACTIONS (5)
  - Chronic graft versus host disease in skin [Recovering/Resolving]
  - Drug ineffective [Unknown]
  - Chronic graft versus host disease [Recovering/Resolving]
  - Chronic graft versus host disease in liver [Recovering/Resolving]
  - Product use in unapproved indication [Unknown]
